FAERS Safety Report 10411352 (Version 2)
Quarter: 2015Q1

REPORT INFORMATION
  Report Type: Spontaneous
  Country: US (occurrence: US)
  Receive Date: 20140826
  Receipt Date: 20150116
  Transmission Date: 20150720
  Serious: Yes (Hospitalization, Other)
  Sender: FDA-Public Use
  Company Number: US-AMGEN-USASP2014064413

PATIENT
  Age: 74 Year
  Sex: Male

DRUGS (2)
  1. PROLIA [Suspect]
     Active Substance: DENOSUMAB
     Indication: OSTEOPOROSIS
     Dosage: 1 ML (60MG/ML), Q6MO
     Route: 058
     Dates: start: 20140301
  2. LASIX [Concomitant]
     Active Substance: FUROSEMIDE
     Dosage: 0.5 TAB, AS NECESSARY

REACTIONS (24)
  - Drug ineffective for unapproved indication [Unknown]
  - Pollakiuria [Unknown]
  - Acute kidney injury [Unknown]
  - Hypercalcaemia [Unknown]
  - Weight increased [Unknown]
  - Bone disorder [Unknown]
  - Pain in jaw [Unknown]
  - Grip strength decreased [Unknown]
  - Arthralgia [Unknown]
  - Renal disorder [Unknown]
  - Hypovitaminosis [Unknown]
  - Myalgia [Unknown]
  - Blood calcium increased [Unknown]
  - Pain in extremity [Unknown]
  - Mineral deficiency [Unknown]
  - Memory impairment [Unknown]
  - Vitamin D deficiency [Unknown]
  - Hypertension [Unknown]
  - Sensory loss [Unknown]
  - Pain [Unknown]
  - Pruritus [Unknown]
  - Gastric disorder [Unknown]
  - Vision blurred [Unknown]
  - Toothache [Unknown]

NARRATIVE: CASE EVENT DATE: 2014
